FAERS Safety Report 7604795-5 (Version None)
Quarter: 2011Q3

REPORT INFORMATION
  Report Type: 
  Country: None (occurrence: None)
  Receive Date: 20110712
  Receipt Date: 20110701
  Transmission Date: 20111222
  Serious: Yes (Death)
  Sender: FDA-Public Use
  Company Number: FR-GENENTECH-321091

PATIENT
  Sex: Male

DRUGS (9)
  1. DOXORUBICIN HCL [Concomitant]
     Dosage: 80 MG, UNK
     Dates: start: 20071018, end: 20071220
  2. RITUXIMAB [Suspect]
     Indication: LYMPHOMA
     Dosage: 650 MG, UNK
     Route: 065
     Dates: start: 20070927, end: 20080110
  3. RITUXIMAB [Suspect]
     Dosage: 650 MG, UNK
     Route: 065
     Dates: start: 20080301
  4. CYCLOPHOSPHAMIDE [Concomitant]
     Dosage: 1100 MG, UNK
     Dates: start: 20071018, end: 20080110
  5. ONCOVIN [Concomitant]
     Dosage: 1.6 MG, UNK
     Dates: start: 20071129, end: 20080110
  6. DOXORUBICIN HCL [Concomitant]
     Indication: PRODUCT USED FOR UNKNOWN INDICATION
     Dosage: 85 MG, UNK
     Dates: start: 20070927, end: 20070927
  7. DOXORUBICIN HCL [Concomitant]
     Dosage: 8 MG, UNK
     Dates: start: 20080110
  8. ONCOVIN [Concomitant]
     Indication: PRODUCT USED FOR UNKNOWN INDICATION
     Dosage: 2 MG, UNK
     Dates: start: 20070927, end: 20071108
  9. CYCLOPHOSPHAMIDE [Concomitant]
     Indication: PRODUCT USED FOR UNKNOWN INDICATION
     Dosage: 1300 MG, UNK
     Dates: start: 20070927, end: 20070927

REACTIONS (1)
  - DEATH [None]
